FAERS Safety Report 24842828 (Version 1)
Quarter: 2025Q1

REPORT INFORMATION
  Report Type: Report from Study
  Country: US (occurrence: US)
  Receive Date: 20250115
  Receipt Date: 20250115
  Transmission Date: 20250409
  Serious: Yes (Hospitalization)
  Sender: HRA PHARMA
  Company Number: US-ORG100014127-2024000096

PATIENT
  Age: 52 Year
  Sex: Female

DRUGS (24)
  1. LYSODREN [Suspect]
     Active Substance: MITOTANE
     Indication: Endocrine neoplasm malignant
     Dosage: 1 TABLETS TWICE DAILY FOR 1 WEEK
     Route: 048
     Dates: start: 20230607
  2. LYSODREN [Suspect]
     Active Substance: MITOTANE
     Indication: Endocrine neoplasm malignant
     Dosage: 2 TABLETS TWICE A DAY
     Route: 048
  3. LYSODREN [Suspect]
     Active Substance: MITOTANE
     Indication: Endocrine neoplasm malignant
     Dosage: 04 TABLET TWICE DAILY
     Route: 048
  4. acetaminophen tab 325mg [Concomitant]
     Indication: Product used for unknown indication
  5. amlodipine tab 5mg [Concomitant]
     Indication: Product used for unknown indication
  6. BACLOFEN [Concomitant]
     Active Substance: BACLOFEN
     Indication: Product used for unknown indication
  7. Betamethasone dip ointment 0.05% [Concomitant]
     Indication: Product used for unknown indication
  8. Breo ellipta inh 100-25 [Concomitant]
     Indication: Product used for unknown indication
  9. diclofenac gel 1%; [Concomitant]
     Indication: Product used for unknown indication
  10. diphenhydramine cap 25mg [Concomitant]
     Indication: Product used for unknown indication
  11. FLUTICASONE [Concomitant]
     Active Substance: FLUTICASONE
     Indication: Product used for unknown indication
  12. METFORMIN [Concomitant]
     Active Substance: METFORMIN HYDROCHLORIDE
     Indication: Product used for unknown indication
  13. metoprolol tar tab 50mg [Concomitant]
     Indication: Product used for unknown indication
  14. Olopatadine DRO 0.1%; [Concomitant]
     Indication: Product used for unknown indication
  15. Opzelura CRE 1.5 [Concomitant]
     Indication: Product used for unknown indication
  16. PANTOPRAZOLE SODIUM [Concomitant]
     Active Substance: PANTOPRAZOLE SODIUM
     Indication: Product used for unknown indication
  17. ROSUVASTATIN [Concomitant]
     Active Substance: ROSUVASTATIN
     Indication: Product used for unknown indication
  18. CALCIUM/D3 Tab [Concomitant]
     Indication: Product used for unknown indication
  19. CERAVE OIL HEALING [Concomitant]
     Indication: Product used for unknown indication
  20. FISH OIL CAP 1200MG [Concomitant]
     Indication: Product used for unknown indication
  21. SYSTANE DRO CONTACTS [Concomitant]
     Indication: Product used for unknown indication
  22. HALOPERIDOL TAB 5MG [Concomitant]
     Indication: Product used for unknown indication
  23. LEVOTHYROXIN CAP 25MCG [Concomitant]
     Indication: Product used for unknown indication
  24. MIRTAZAPINE TAB 15MG [Concomitant]
     Indication: Product used for unknown indication

REACTIONS (3)
  - Vomiting [Not Recovered/Not Resolved]
  - Nausea [Not Recovered/Not Resolved]
  - Off label use [Unknown]

NARRATIVE: CASE EVENT DATE: 20230607
